FAERS Safety Report 9618797 (Version 1)
Quarter: 2013Q4

REPORT INFORMATION
  Report Type: Report from Study
  Country: US (occurrence: US)
  Receive Date: 20131014
  Receipt Date: 20131014
  Transmission Date: 20140711
  Serious: Yes (Hospitalization)
  Sender: FDA-Public Use
  Company Number: PHEH2013US021230

PATIENT
  Sex: Female

DRUGS (2)
  1. TOBI [Suspect]
     Dosage: 300 MG, BID
  2. TOBI [Suspect]
     Dosage: UNK

REACTIONS (1)
  - Infective exacerbation of chronic obstructive airways disease [Unknown]
